FAERS Safety Report 24610940 (Version 3)
Quarter: 2024Q4

REPORT INFORMATION
  Report Type: Spontaneous
  Country: US (occurrence: US)
  Receive Date: 20241112
  Receipt Date: 20241202
  Transmission Date: 20250115
  Serious: Yes (Other)
  Sender: ORGANON
  Company Number: US-ORGANON-O2411USA000615

PATIENT
  Age: 22 Year
  Sex: Female
  Weight: 61.678 kg

DRUGS (1)
  1. NEXPLANON [Suspect]
     Active Substance: ETONOGESTREL
     Indication: Contraception
     Dosage: 1 IMPLANT IN LEFT ARM
     Route: 059
     Dates: start: 202304

REACTIONS (5)
  - Pregnancy with implant contraceptive [Recovered/Resolved]
  - Caesarean section [Recovered/Resolved]
  - Unintended pregnancy [Recovered/Resolved]
  - Vaginal haemorrhage [Not Recovered/Not Resolved]
  - Complication associated with device [Not Recovered/Not Resolved]

NARRATIVE: CASE EVENT DATE: 20231215
